FAERS Safety Report 5088467-X (Version None)
Quarter: 2006Q3

REPORT INFORMATION
  Report Type: 
  Country: None (occurrence: None)
  Receive Date: 20060823
  Receipt Date: 20060823
  Transmission Date: 20061208
  Serious: Yes (Other)
  Sender: FDA-Public Use
  Company Number: None

PATIENT
  Sex: Male
  Weight: 77.1115 kg

DRUGS (1)
  1. OXYCONTIN [Suspect]
     Indication: PAIN
     Dosage: 80 MG 2 BID PO
     Route: 048
     Dates: start: 20060601

REACTIONS (3)
  - ANGINA PECTORIS [None]
  - NAUSEA [None]
  - VOMITING [None]
